FAERS Safety Report 21532110 (Version 1)
Quarter: 2022Q4

REPORT INFORMATION
  Report Type: Spontaneous
  Country: US (occurrence: US)
  Receive Date: 20221101
  Receipt Date: 20221101
  Transmission Date: 20230113
  Serious: No
  Sender: FDA-Public Use
  Company Number: US-BRISTOL-MYERS SQUIBB COMPANY-2022-129464

PATIENT
  Age: 39 Year
  Sex: Male

DRUGS (1)
  1. REVLIMID [Suspect]
     Active Substance: LENALIDOMIDE
     Indication: Plasma cell myeloma
     Dosage: FREQUENCY- TAKE 1 CAPSULE (15MG) BY MOUTH ONCE DAILY 21 DAYS ON AND 7 DAYS OFF.
     Route: 048
     Dates: start: 202106

REACTIONS (3)
  - Epistaxis [Unknown]
  - Dry skin [Unknown]
  - Off label use [Unknown]
